FAERS Safety Report 9696074 (Version 1)
Quarter: 2013Q4

REPORT INFORMATION
  Report Type: Spontaneous
  Country: IN (occurrence: None)
  Receive Date: 20131115
  Receipt Date: 20131115
  Transmission Date: 20140711
  Serious: Yes (Hospitalization)
  Sender: FDA-Public Use
  Company Number: IMP_06872_2013

PATIENT
  Age: 56 Year
  Sex: Male

DRUGS (1)
  1. DIGOXIN (DIGOXIN) [Suspect]
     Indication: ATRIAL FIBRILLATION
     Dosage: (HALF A TAB)?

REACTIONS (10)
  - Syncope [None]
  - Bradycardia [None]
  - Generalised oedema [None]
  - Ascites [None]
  - Cardiomegaly [None]
  - Cardiac murmur [None]
  - Atrial fibrillation [None]
  - Pericardial effusion [None]
  - Mitral valve incompetence [None]
  - Amyloidosis [None]
